FAERS Safety Report 7755729-4 (Version None)
Quarter: 2011Q3

REPORT INFORMATION
  Report Type: 
  Country: None (occurrence: None)
  Receive Date: 20110916
  Receipt Date: 20110912
  Transmission Date: 20111222
  Serious: Yes (Other)
  Sender: FDA-Public Use
  Company Number: PHHY2011TR81441

PATIENT
  Age: 33 Year
  Sex: Female

DRUGS (2)
  1. OCTREOTIDE ACETATE [Suspect]
     Dosage: 2 MG/KG/HOUR
  2. OCTREOTIDE ACETATE [Suspect]
     Dosage: 4 MG/KG/HOUR

REACTIONS (2)
  - PULMONARY EMBOLISM [None]
  - DYSPNOEA EXERTIONAL [None]
